FAERS Safety Report 7241743-4 (Version None)
Quarter: 2011Q1

REPORT INFORMATION
  Report Type: 
  Country: None (occurrence: None)
  Receive Date: 20110124
  Receipt Date: 20110118
  Transmission Date: 20110831
  Serious: Yes (Other)
  Sender: FDA-Public Use
  Company Number: US-ABBOTT-11P-163-0699087-00

PATIENT
  Sex: Female
  Weight: 72.186 kg

DRUGS (10)
  1. HUMIRA [Suspect]
     Indication: RHEUMATOID ARTHRITIS
     Dates: start: 20080101
  2. MEDROL [Concomitant]
     Indication: PRODUCT USED FOR UNKNOWN INDICATION
  3. SIMVASTATIN [Concomitant]
     Indication: BLOOD CHOLESTEROL INCREASED
  4. OMEPRAZOLE [Concomitant]
     Indication: GASTROOESOPHAGEAL REFLUX DISEASE
  5. HUMIRA [Suspect]
     Indication: ANKYLOSING SPONDYLITIS
  6. VICOPROFEN [Concomitant]
     Indication: PAIN
  7. BENAZEPRIL/HCTZ [Concomitant]
     Indication: HYPERTENSION
  8. VICOPROFEN [Concomitant]
     Indication: INFLAMMATION
  9. FLEXERIL [Concomitant]
     Indication: MUSCLE RELAXANT THERAPY
  10. VITAMINS AND SUPPLEMENTS [Concomitant]
     Indication: PRODUCT USED FOR UNKNOWN INDICATION

REACTIONS (2)
  - PAIN IN EXTREMITY [None]
  - FOOT FRACTURE [None]
